FAERS Safety Report 11025117 (Version 1)
Quarter: 2015Q2

REPORT INFORMATION
  Report Type: Spontaneous
  Country: US (occurrence: None)
  Receive Date: 20150413
  Receipt Date: 20150413
  Transmission Date: 20150821
  Serious: No
  Sender: FDA-Public Use
  Company Number: None

PATIENT

DRUGS (2)
  1. MOEXIPRIL HCL [Suspect]
     Active Substance: MOEXIPRIL HYDROCHLORIDE
     Route: 048
  2. MELOXICAM (MELOXICAM) [Suspect]
     Active Substance: MELOXICAM

REACTIONS (1)
  - Drug dispensing error [None]
